FAERS Safety Report 25150202 (Version 2)
Quarter: 2025Q2

REPORT INFORMATION
  Report Type: Spontaneous
  Country: US (occurrence: US)
  Receive Date: 20250402
  Receipt Date: 20250509
  Transmission Date: 20250716
  Serious: Yes (Death, Other)
  Sender: PFIZER
  Company Number: US-PFIZER INC-202500068142

PATIENT
  Age: 73 Year
  Sex: Male
  Weight: 66.667 kg

DRUGS (18)
  1. VYNDAMAX [Suspect]
     Active Substance: TAFAMIDIS
     Indication: Cardiac amyloidosis
     Dosage: 61MG QD (EVERYDAY)
     Route: 048
     Dates: start: 20200317, end: 20240301
  2. VYNDAMAX [Suspect]
     Active Substance: TAFAMIDIS
     Indication: Familial amyloidosis
  3. VYNDAMAX [Suspect]
     Active Substance: TAFAMIDIS
     Indication: End stage renal disease
  4. ASPIRIN [Concomitant]
     Active Substance: ASPIRIN
     Dosage: TAKE 1 TABLET EVERY DAY BY ORAL ROUTE. (DELAYED RELEASE)
     Route: 048
  5. AMIODARONE [Concomitant]
     Active Substance: AMIODARONE
     Dosage: TAKE 1 TABLET TWICE A DAY BY ORAL ROUTE.
     Route: 048
  6. CLONIDINE HYDROCHLORIDE [Concomitant]
     Active Substance: CLONIDINE HYDROCHLORIDE
     Dosage: TAKE ONE TABLET BY MOUTH 3 TIMES DAILY
     Route: 048
  7. ELIQUIS [Concomitant]
     Active Substance: APIXABAN
     Dosage: TAKE 1 TABLET TWICE A DAY BY ORAL ROUTE.
     Route: 048
  8. HUMALOG KWIKPEN [Concomitant]
     Active Substance: INSULIN LISPRO
     Dosage: INJECT 36 UNITS 3 TIMES A DAY BY SUBCUTANEOUS ROUTE.
     Route: 058
  9. HYDRALAZINE [Concomitant]
     Active Substance: HYDRALAZINE HYDROCHLORIDE
     Dosage: TAKE 1 TABLET TWICE A DAY BY ORAL ROUTE.
     Route: 048
  10. LANTUS SOLOSTAR [Concomitant]
     Active Substance: INSULIN GLARGINE
     Route: 058
  11. LOKELMA [Concomitant]
     Active Substance: SODIUM ZIRCONIUM CYCLOSILICATE
     Dosage: 10 GRAM ORAL POWDER PACKET TAKE 1 PACKET EVERY DAY BY ORAL ROUTE.
     Route: 048
  12. NOVOLOG [Concomitant]
     Active Substance: INSULIN ASPART
     Dosage: NOVOLOG FLEXPEN U-100 INSULIN ASPART 100 UNIT/ML (3 ML) SUBCUTANEOUS DAILY
     Route: 058
  13. RENVELA [Concomitant]
     Active Substance: SEVELAMER CARBONATE
     Dosage: TAKE 1 TABLET 3 TIMES A DAY BY ORAL ROUTE
     Route: 048
  14. SENSIPAR [Concomitant]
     Active Substance: CINACALCET HYDROCHLORIDE
     Dosage: 30 MG, 1X/DAY
  15. VITAMIN D3 [Concomitant]
     Active Substance: CHOLECALCIFEROL
     Dosage: VITAMIN D3 10 MCG (400 UNIT) TABLET TAKE 1 TABLET EVERY DAY BY ORAL ROUTE.
     Route: 048
  16. VYNDAQEL [Concomitant]
     Active Substance: TAFAMIDIS MEGLUMINE
     Dosage: 20 MG CAPSULE TAKE 4 CAPSULES BY MOUTH 1 TIME A DAY
     Route: 048
  17. MODERNA COVID-19 VACCINE [Concomitant]
     Active Substance: ELASOMERAN
     Indication: COVID-19 immunisation
     Route: 030
     Dates: start: 20210428, end: 20210428
  18. MODERNA COVID-19 VACCINE [Concomitant]
     Active Substance: ELASOMERAN
     Route: 030
     Dates: start: 20210331, end: 20210331

REACTIONS (1)
  - Death [Fatal]

NARRATIVE: CASE EVENT DATE: 20231219
